FAERS Safety Report 25753807 (Version 1)
Quarter: 2025Q3

REPORT INFORMATION
  Report Type: Spontaneous
  Country: JP (occurrence: JP)
  Receive Date: 20250903
  Receipt Date: 20250903
  Transmission Date: 20251020
  Serious: Yes (Hospitalization, Other)
  Sender: SUNOVION
  Company Number: JP-DSPHARMA-2025SMP007424

PATIENT
  Age: 45 Year
  Sex: Male

DRUGS (5)
  1. LATUDA [Suspect]
     Active Substance: LURASIDONE HYDROCHLORIDE
     Indication: Bipolar disorder
     Dosage: 20 MG, QD
     Route: 048
     Dates: start: 20240918, end: 20240929
  2. LATUDA [Suspect]
     Active Substance: LURASIDONE HYDROCHLORIDE
     Dosage: 40 MG, QD
     Route: 048
     Dates: start: 20240930, end: 20241025
  3. LATUDA [Suspect]
     Active Substance: LURASIDONE HYDROCHLORIDE
     Dosage: MORE THAN 60 MG, SINGLE
     Route: 048
     Dates: start: 20241026, end: 20241026
  4. DAYVIGO [Concomitant]
     Active Substance: LEMBOREXANT
     Indication: Insomnia
     Dosage: 10 MG, QD
     Route: 048
     Dates: start: 20240722, end: 20241026
  5. FLUNITRAZEPAM [Concomitant]
     Active Substance: FLUNITRAZEPAM
     Indication: Insomnia
     Dosage: 2 MG, QD
     Route: 048
     Dates: start: 20240722, end: 20241026

REACTIONS (3)
  - Renal tubular necrosis [Recovered/Resolved]
  - Suicide attempt [Recovered/Resolved]
  - Intentional overdose [Unknown]

NARRATIVE: CASE EVENT DATE: 20241026
